FAERS Safety Report 17348165 (Version 1)
Quarter: 2020Q1

REPORT INFORMATION
  Report Type: Spontaneous
  Country: US (occurrence: US)
  Receive Date: 20200130
  Receipt Date: 20200130
  Transmission Date: 20200409
  Serious: No
  Sender: FDA-Public Use
  Company Number: US-PFIZER INC-2020031515

PATIENT
  Age: 59 Year
  Sex: Male
  Weight: 115.67 kg

DRUGS (2)
  1. LYRICA [Suspect]
     Active Substance: PREGABALIN
     Dosage: 200 MG, 3X/DAY
  2. FELDENE [Concomitant]
     Active Substance: PIROXICAM
     Dosage: 20 MG, 1X/DAY

REACTIONS (1)
  - Procedural pain [Not Recovered/Not Resolved]
